FAERS Safety Report 5778705-X (Version None)
Quarter: 2008Q2

REPORT INFORMATION
  Report Type: 
  Country: None (occurrence: None)
  Receive Date: 20080619
  Receipt Date: 20080612
  Transmission Date: 20081010
  Serious: Yes (Other)
  Sender: FDA-Public Use
  Company Number: US-ASTRAZENECA-2007UW20448

PATIENT
  Age: 475 Month
  Sex: Female
  Weight: 90.9 kg

DRUGS (6)
  1. SEROQUEL [Suspect]
     Indication: ANXIETY
     Route: 048
     Dates: start: 20030101, end: 20071101
  2. SEROQUEL [Suspect]
     Indication: DEPRESSION
     Route: 048
     Dates: start: 20030101, end: 20071101
  3. CELEXA [Concomitant]
  4. LEXAPRO [Concomitant]
     Dates: start: 20030101
  5. DESYREL [Concomitant]
  6. ZOLOFT [Concomitant]
     Dates: start: 20010101, end: 20030101

REACTIONS (2)
  - NERVE INJURY [None]
  - TYPE 2 DIABETES MELLITUS [None]
